FAERS Safety Report 5331788-3 (Version None)
Quarter: 2007Q2

REPORT INFORMATION
  Report Type: 
  Country: None (occurrence: None)
  Receive Date: 20070517
  Receipt Date: 20070504
  Transmission Date: 20071010
  Serious: Yes (Hospitalization)
  Sender: FDA-Public Use
  Company Number: 16420

PATIENT
  Age: 43 Year
  Sex: Female
  Weight: 87 kg

DRUGS (2)
  1. PENTOSTATIN [Suspect]
     Indication: HODGKIN'S DISEASE
     Dosage: 14 MG FREQ  IV
     Route: 042
     Dates: start: 20061231, end: 20070101
  2. PENTOSTATIN [Suspect]
     Indication: HODGKIN'S DISEASE
     Dates: start: 20070430

REACTIONS (12)
  - ABDOMINAL PAIN [None]
  - COUGH [None]
  - DIARRHOEA [None]
  - HEADACHE [None]
  - LUNG CONSOLIDATION [None]
  - PERICARDIAL EFFUSION [None]
  - PLEURAL EFFUSION [None]
  - PULMONARY ALVEOLAR HAEMORRHAGE [None]
  - PULMONARY OEDEMA [None]
  - PYREXIA [None]
  - RESPIRATORY DISTRESS [None]
  - RESPIRATORY FAILURE [None]
